FAERS Safety Report 4827400-X (Version None)
Quarter: 2005Q4

REPORT INFORMATION
  Report Type: 
  Country: None (occurrence: None)
  Receive Date: 20051114
  Receipt Date: 20051104
  Transmission Date: 20060501
  Serious: Yes (Other)
  Sender: FDA-Public Use
  Company Number: US-MERCK-0511USA01087

PATIENT
  Age: 49 Year
  Sex: Male
  Weight: 109 kg

DRUGS (6)
  1. VIOXX [Suspect]
     Indication: ARTHRITIS
     Route: 048
     Dates: start: 20030801, end: 20040901
  2. VIOXX [Suspect]
     Indication: FIBROMYALGIA
     Route: 048
     Dates: start: 20030801, end: 20040901
  3. EFFEXOR [Concomitant]
     Route: 065
  4. NEXIUM [Concomitant]
     Route: 065
  5. HYDROCHLOROTHIAZIDE TABLETS (USP 23) [Concomitant]
     Route: 065
  6. ATENOLOL MSD [Concomitant]
     Route: 065

REACTIONS (1)
  - CEREBROVASCULAR ACCIDENT [None]
